FAERS Safety Report 5182959-0 (Version None)
Quarter: 2006Q4

REPORT INFORMATION
  Report Type: 
  Country: None (occurrence: None)
  Receive Date: 20061220
  Receipt Date: 20061205
  Transmission Date: 20070319
  Serious: Yes (Hospitalization)
  Sender: FDA-Public Use
  Company Number: PHBS2006KR18941

PATIENT
  Age: 24 Year
  Sex: Male
  Weight: 76 kg

DRUGS (3)
  1. GLEEVEC [Suspect]
     Indication: CHRONIC MYELOID LEUKAEMIA
     Dosage: 400 MG/DAY
     Route: 048
     Dates: start: 20061204
  2. HYDREA [Concomitant]
     Dates: start: 20061204
  3. ANTICOAGULANTS [Concomitant]

REACTIONS (7)
  - COUGH [None]
  - DYSPNOEA [None]
  - GENERALISED OEDEMA [None]
  - PITTING OEDEMA [None]
  - PLEURAL EFFUSION [None]
  - PLEURISY [None]
  - RALES [None]
